FAERS Safety Report 6748924-4 (Version None)
Quarter: 2010Q2

REPORT INFORMATION
  Report Type: 
  Country: None (occurrence: None)
  Receive Date: 20100601
  Receipt Date: 20100517
  Transmission Date: 20101027
  Serious: Yes (Other)
  Sender: FDA-Public Use
  Company Number: US-ASTRAZENECA-2009SE17425

PATIENT
  Sex: Male

DRUGS (5)
  1. SEROQUEL [Suspect]
     Route: 048
     Dates: start: 20041222
  2. ATENOLOL [Concomitant]
     Dosage: HALF TABLET AT NIGHT
  3. LORATADINE [Concomitant]
  4. LORAZEPAM [Concomitant]
  5. PAXIL [Concomitant]

REACTIONS (2)
  - AUTONOMIC NEUROPATHY [None]
  - DIABETES MELLITUS [None]
